FAERS Safety Report 12629894 (Version 3)
Quarter: 2016Q3

REPORT INFORMATION
  Report Type: Spontaneous
  Country: US (occurrence: US)
  Receive Date: 20160808
  Receipt Date: 20160826
  Transmission Date: 20161109
  Serious: Yes (Other)
  Sender: FDA-Public Use
  Company Number: US-BAYER-2016-149267

PATIENT
  Age: 31 Year
  Sex: Female

DRUGS (1)
  1. MIRENA [Suspect]
     Active Substance: LEVONORGESTREL
     Indication: CONTRACEPTION
     Dosage: 20 MCG/24HR, CONT
     Route: 015
     Dates: start: 20160425, end: 20160808

REACTIONS (5)
  - Alopecia [Not Recovered/Not Resolved]
  - Genital haemorrhage [Recovered/Resolved]
  - Weight increased [Recovering/Resolving]
  - Weight loss poor [Recovering/Resolving]
  - Loss of libido [None]

NARRATIVE: CASE EVENT DATE: 201604
